FAERS Safety Report 16303249 (Version 3)
Quarter: 2020Q3

REPORT INFORMATION
  Report Type: Spontaneous
  Country: US (occurrence: US)
  Receive Date: 20190513
  Receipt Date: 20200818
  Transmission Date: 20201102
  Serious: Yes (Hospitalization, Other)
  Sender: FDA-Public Use
  Company Number: US-ASTRAZENECA-2019SE63801

PATIENT
  Age: 30078 Day
  Sex: Female
  Weight: 56.7 kg

DRUGS (19)
  1. NEXIUM [Suspect]
     Active Substance: ESOMEPRAZOLE MAGNESIUM
     Indication: INFECTION
     Route: 048
     Dates: start: 2017
  2. ASPIRIN. [Concomitant]
     Active Substance: ASPIRIN
  3. SPIRONOLACTONE. [Concomitant]
     Active Substance: SPIRONOLACTONE
  4. CRESTOR [Concomitant]
     Active Substance: ROSUVASTATIN CALCIUM
  5. DIOVAN HCT [Concomitant]
     Active Substance: HYDROCHLOROTHIAZIDE\VALSARTAN
  6. CALCIUM?PHOSPHORUS?VITAMIN D [Concomitant]
  7. ROSUVASTATIN. [Concomitant]
     Active Substance: ROSUVASTATIN
     Indication: BLOOD CHOLESTEROL
  8. VALSARTAN. [Concomitant]
     Active Substance: VALSARTAN
  9. MULTIVITAMINS [Concomitant]
     Active Substance: VITAMINS
  10. VALSARTIN [Concomitant]
     Active Substance: VALSARTAN
     Indication: BLOOD PRESSURE MEASUREMENT
  11. DOXAZOSIN [Concomitant]
     Active Substance: DOXAZOSIN MESYLATE
     Indication: BLOOD PRESSURE MEASUREMENT
  12. VERAPAMIL [Concomitant]
     Active Substance: VERAPAMIL HYDROCHLORIDE
  13. LUMIGAN [Concomitant]
     Active Substance: BIMATOPROST
     Indication: EYE DISORDER
  14. CARDURA [Concomitant]
     Active Substance: DOXAZOSIN MESYLATE
  15. NEXIUM [Suspect]
     Active Substance: ESOMEPRAZOLE MAGNESIUM
     Indication: INFECTION
     Route: 048
     Dates: start: 20170829, end: 20170901
  16. CEFDINIR. [Concomitant]
     Active Substance: CEFDINIR
     Indication: INFECTION
  17. VALSARTAN. [Concomitant]
     Active Substance: VALSARTAN
  18. VERPAMIL [Concomitant]
     Active Substance: VERAPAMIL HYDROCHLORIDE
     Indication: BLOOD PRESSURE MEASUREMENT
  19. VERAPAMIL HCI [Concomitant]

REACTIONS (4)
  - Renal failure [Unknown]
  - Nephrogenic anaemia [Unknown]
  - Acute kidney injury [Recovered/Resolved]
  - Chronic kidney disease [Unknown]

NARRATIVE: CASE EVENT DATE: 20170902
